FAERS Safety Report 25574745 (Version 1)
Quarter: 2025Q3

REPORT INFORMATION
  Report Type: Spontaneous
  Country: US (occurrence: US)
  Receive Date: 20250718
  Receipt Date: 20250718
  Transmission Date: 20251021
  Serious: Yes (Hospitalization, Other)
  Sender: APOTEX
  Company Number: US-APOTEX-2025AP010118

PATIENT
  Age: 53 Year
  Sex: Female

DRUGS (2)
  1. MACITENTAN [Suspect]
     Active Substance: MACITENTAN
     Indication: Pulmonary arterial hypertension
     Dosage: 10 MILLIGRAM, QD
     Route: 065
     Dates: end: 202408
  2. RIOCIGUAT [Suspect]
     Active Substance: RIOCIGUAT
     Indication: Pulmonary arterial hypertension
     Dosage: 2.5 MILLIGRAM, TID
     Route: 065
     Dates: end: 202408

REACTIONS (5)
  - Left ventricular failure [Unknown]
  - Right ventricular failure [Unknown]
  - Condition aggravated [Unknown]
  - Cardiac failure high output [Unknown]
  - Heart failure with preserved ejection fraction [Unknown]

NARRATIVE: CASE EVENT DATE: 20240801
